FAERS Safety Report 15190575 (Version 3)
Quarter: 2018Q3

REPORT INFORMATION
  Report Type: Spontaneous
  Country: JP (occurrence: JP)
  Receive Date: 20180724
  Receipt Date: 20180807
  Transmission Date: 20181010
  Serious: Yes (Hospitalization, Other)
  Sender: FDA-Public Use
  Company Number: JP-GLAXOSMITHKLINE-JP2018JPN106931

PATIENT
  Age: 88 Year
  Sex: Female
  Weight: 38 kg

DRUGS (15)
  1. VALTREX [Suspect]
     Active Substance: VALACYCLOVIR HYDROCHLORIDE
     Indication: HERPES ZOSTER
     Dosage: 1000 MG, TID
     Route: 048
     Dates: start: 20180607, end: 20180611
  2. SPIROPENT [Concomitant]
     Active Substance: CLENBUTEROL HYDROCHLORIDE
     Dosage: 20 ?G, BID
     Dates: start: 20180607
  3. TOVIAZ [Concomitant]
     Active Substance: FESOTERODINE FUMARATE
     Dosage: 8 MG, QD
     Dates: start: 20180607
  4. PRAVASTATIN NA TABLETS [Concomitant]
     Dosage: 5 MG, QD
     Dates: start: 20180607
  5. TALAVIR [Suspect]
     Active Substance: VALACYCLOVIR HYDROCHLORIDE
     Indication: HERPES ZOSTER
     Dosage: 1000 MG, TID
     Route: 048
     Dates: start: 20180612, end: 20180613
  6. ZACRAS [Concomitant]
     Active Substance: AMLODIPINE BESYLATE\AZILSARTAN
     Indication: HYPERTENSION
     Dosage: 1 DF, QD
     Dates: start: 20180607
  7. LANSOPRAZOLE?OD TABLETS [Concomitant]
     Dosage: 15 MG, QD
     Dates: start: 20180607
  8. HYALONSAN [Concomitant]
     Dosage: 0.1 %, UNK
     Dates: start: 20180607
  9. MAGMITT TABLET [Concomitant]
     Dosage: 660 MG, QD
     Dates: start: 20180607
  10. PROPETO [Concomitant]
     Dosage: UNK, BID
     Dates: start: 20180607
  11. VIDARABINE [Concomitant]
     Active Substance: VIDARABINE
     Dosage: 3 %, UNK
     Route: 061
  12. METHYCOBAL TABLET [Concomitant]
     Dosage: 500 ?G, TID
     Route: 048
     Dates: start: 20180607
  13. LYRICA OD TABLETS [Concomitant]
     Dosage: 25 MG, BID
     Dates: start: 20180607
  14. ACETAMINOPHEN. [Concomitant]
     Active Substance: ACETAMINOPHEN
     Dosage: 400 MG, PRN
     Route: 048
     Dates: start: 20180607
  15. REBAMIPIDE TABLETS [Concomitant]
     Dosage: 100 MG, TID
     Dates: start: 20180607

REACTIONS (9)
  - Prescribed overdose [Unknown]
  - Altered state of consciousness [Recovered/Resolved]
  - Toxic encephalopathy [Recovered/Resolved]
  - Hyperkalaemia [Recovered/Resolved]
  - Speech disorder [Recovered/Resolved]
  - Dyslalia [Recovered/Resolved]
  - Gait inability [Recovered/Resolved]
  - Muscular weakness [Recovered/Resolved]
  - Renal impairment [Recovered/Resolved]

NARRATIVE: CASE EVENT DATE: 20180607
